FAERS Safety Report 6013891-8 (Version None)
Quarter: 2008Q4

REPORT INFORMATION
  Report Type: 
  Country: None (occurrence: None)
  Receive Date: 20081219
  Receipt Date: 20080917
  Transmission Date: 20090506
  Serious: No
  Sender: FDA-Public Use
  Company Number: A0748846A

PATIENT
  Age: 50 Year
  Sex: Male
  Weight: 88 kg

DRUGS (4)
  1. SERETIDE [Suspect]
     Route: 065
     Dates: start: 20080101, end: 20080907
  2. ATROVENT [Concomitant]
     Dates: start: 19880101
  3. BEROTEC [Concomitant]
     Dates: start: 19880101
  4. SODIUM BICARBONATE [Concomitant]
     Dates: start: 20080101

REACTIONS (3)
  - DYSPHONIA [None]
  - OEDEMA PERIPHERAL [None]
  - ORAL CANDIDIASIS [None]
